FAERS Safety Report 10141848 (Version 1)
Quarter: 2014Q2

REPORT INFORMATION
  Report Type: Spontaneous
  Country: IT (occurrence: IT)
  Receive Date: 20140429
  Receipt Date: 20140429
  Transmission Date: 20141212
  Serious: Yes (Hospitalization)
  Sender: FDA-Public Use
  Company Number: IT-MYLANLABS-2014S1009151

PATIENT
  Age: 93 Year
  Sex: Female

DRUGS (10)
  1. TICLOPIDINE HYDROCHLORIDE [Suspect]
     Indication: PROPHYLAXIS
     Dosage: 1 DF DAILY
     Route: 048
     Dates: start: 20130101, end: 20140209
  2. CARDIOASPIRIN [Suspect]
     Indication: PROPHYLAXIS
     Dosage: 1 DF DAILY
     Route: 048
     Dates: start: 20130101, end: 20140209
  3. TAPAZOLE [Concomitant]
     Indication: PRODUCT USED FOR UNKNOWN INDICATION
     Dosage: 1 DF
     Route: 048
  4. NITRODERM [Concomitant]
     Indication: PRODUCT USED FOR UNKNOWN INDICATION
  5. INDERAL [Concomitant]
     Indication: PRODUCT USED FOR UNKNOWN INDICATION
     Dosage: 1 DF
     Route: 048
  6. ALDACTONE [Concomitant]
     Indication: PRODUCT USED FOR UNKNOWN INDICATION
     Route: 048
  7. ENALAPRIL MALEATE [Concomitant]
     Indication: PRODUCT USED FOR UNKNOWN INDICATION
     Route: 048
  8. FUROSEMIDE [Concomitant]
     Indication: PRODUCT USED FOR UNKNOWN INDICATION
     Route: 048
  9. PANTOPRAZOLE SODIUM [Concomitant]
     Indication: PRODUCT USED FOR UNKNOWN INDICATION
     Route: 048
  10. LORAZEPAM [Concomitant]
     Indication: PRODUCT USED FOR UNKNOWN INDICATION
     Route: 048

REACTIONS (3)
  - Anaemia [Recovering/Resolving]
  - Gastrointestinal angiodysplasia [Recovering/Resolving]
  - Subendocardial ischaemia [Recovering/Resolving]
